FAERS Safety Report 4995506-0 (Version None)
Quarter: 2006Q1

REPORT INFORMATION
  Report Type: 
  Country: None (occurrence: None)
  Receive Date: 20060315
  Receipt Date: 20051201
  Transmission Date: 20060701
  Serious: Yes (Other)
  Sender: FDA-Public Use
  Company Number: 427394

PATIENT
  Sex: Male

DRUGS (5)
  1. BONIVA [Suspect]
     Indication: DRUG USE FOR UNKNOWN INDICATION
     Dosage: ORAL
     Route: 048
  2. TAGAMET [Concomitant]
  3. PREDNISONE TAB [Concomitant]
  4. CALCIUM (CALCIUM) [Concomitant]
  5. AQUANIL (TIMOLOL) [Concomitant]

REACTIONS (2)
  - DRUG ADMINISTRATION ERROR [None]
  - NO ADVERSE EFFECT [None]
